FAERS Safety Report 9197841 (Version 2)
Quarter: 2013Q2

REPORT INFORMATION
  Report Type: Spontaneous
  Country: ES (occurrence: DE)
  Receive Date: 20130328
  Receipt Date: 20130507
  Transmission Date: 20140414
  Serious: Yes (Other)
  Sender: FDA-Public Use
  Company Number: DE-FRI-1000043834

PATIENT
  Sex: Male

DRUGS (8)
  1. ACLIDINIUM BROMIDE [Suspect]
     Indication: CHRONIC OBSTRUCTIVE PULMONARY DISEASE
  2. GLIMEPIRID [Concomitant]
     Dosage: 3 MG
  3. GABAPENTIN [Concomitant]
     Dosage: 100 MG
  4. RAMIPRIL [Concomitant]
     Dosage: 1 DF
  5. HYDROCHLOROTHIAZIDE [Concomitant]
     Dosage: 25 MG
  6. AMLODIPIN [Concomitant]
     Dosage: 5 MG
  7. SIMVABETA [Concomitant]
     Dosage: 20 MG
  8. AAS [Concomitant]
     Dosage: 100 MG

REACTIONS (9)
  - Ventricular extrasystoles [Recovering/Resolving]
  - Blood pressure increased [None]
  - Aortic valve incompetence [None]
  - Aortic valve stenosis [None]
  - Mitral valve incompetence [None]
  - Pulmonary valve incompetence [None]
  - Tricuspid valve incompetence [None]
  - Dilatation ventricular [None]
  - Heart sounds abnormal [None]
